FAERS Safety Report 17566020 (Version 2)
Quarter: 2022Q1

REPORT INFORMATION
  Report Type: Spontaneous
  Country: US (occurrence: US)
  Receive Date: 20200320
  Receipt Date: 20220105
  Transmission Date: 20220423
  Serious: Yes (Other)
  Sender: FDA-Public Use
  Company Number: US-PFIZER INC-2020119624

PATIENT
  Age: 74 Year
  Sex: Female

DRUGS (8)
  1. IBRANCE [Suspect]
     Active Substance: PALBOCICLIB
     Indication: Breast cancer
     Dosage: 125 MG, CYCLIC [1 DAILY FOR 21 DAYS]
     Route: 048
     Dates: start: 201610
  2. IBRANCE [Suspect]
     Active Substance: PALBOCICLIB
     Dosage: 100 MG, CYCLIC (21 DAYS ON AND 7 DAYS OFF)
  3. ALBUTEROL SULFATE [Concomitant]
     Active Substance: ALBUTEROL SULFATE
     Dosage: 2.5 MG, UNK
  4. BIOFREEZE PAIN RELIEVING [Concomitant]
     Active Substance: MENTHOL
     Dosage: UNK
  5. DAILY-VITE [Concomitant]
     Dosage: UNK
  6. NITROFURANTOIN [Concomitant]
     Active Substance: NITROFURANTOIN
     Dosage: UNK
  7. ONDANSETRON [Concomitant]
     Active Substance: ONDANSETRON
     Dosage: UNK
  8. XARELTO [Concomitant]
     Active Substance: RIVAROXABAN
     Dosage: UNK

REACTIONS (8)
  - Thrombosis [Unknown]
  - Pulmonary thrombosis [Unknown]
  - Neuropathy peripheral [Recovering/Resolving]
  - Blood potassium decreased [Unknown]
  - Nausea [Recovered/Resolved]
  - Vomiting [Recovered/Resolved]
  - Hypoaesthesia [Unknown]
  - Loss of personal independence in daily activities [Unknown]
